FAERS Safety Report 15088025 (Version 1)
Quarter: 2018Q2

REPORT INFORMATION
  Report Type: Spontaneous
  Country: US (occurrence: US)
  Receive Date: 20180629
  Receipt Date: 20180629
  Transmission Date: 20180711
  Serious: Yes (Hospitalization)
  Sender: FDA-Public Use
  Company Number: US-BEH-2018092212

PATIENT
  Sex: Female
  Weight: 142.86 kg

DRUGS (22)
  1. SODIUM CHLORIDE. [Concomitant]
     Active Substance: SODIUM CHLORIDE
  2. VITAMINS WITH MINERALS [Concomitant]
     Active Substance: MINERALS\VITAMINS
  3. HYDROXYZINE [Concomitant]
     Active Substance: HYDROXYZINE HYDROCHLORIDE
  4. TRAZODONE [Concomitant]
     Active Substance: TRAZODONE HYDROCHLORIDE
  5. ECOTRIN [Concomitant]
     Active Substance: ASPIRIN
  6. LEVAQUIN [Concomitant]
     Active Substance: LEVOFLOXACIN
  7. MICONAZOLE. [Concomitant]
     Active Substance: MICONAZOLE
  8. ZOFRAN [Concomitant]
     Active Substance: ONDANSETRON HYDROCHLORIDE
  9. HAEGARDA [Suspect]
     Active Substance: HUMAN C1-ESTERASE INHIBITOR
     Indication: HEREDITARY ANGIOEDEMA
     Dosage: 6000 IU, UNK
     Route: 058
     Dates: start: 20180620
  10. HAEGARDA [Suspect]
     Active Substance: HUMAN C1-ESTERASE INHIBITOR
     Dosage: UNK
     Route: 058
  11. METFORMIN [Concomitant]
     Active Substance: METFORMIN HYDROCHLORIDE
  12. BUPROPION. [Concomitant]
     Active Substance: BUPROPION
  13. HEPARIN [Concomitant]
     Active Substance: HEPARIN SODIUM
  14. ROPINIROLE. [Concomitant]
     Active Substance: ROPINIROLE
  15. PAROXETINE. [Concomitant]
     Active Substance: PAROXETINE
  16. GABAPENTIN. [Concomitant]
     Active Substance: GABAPENTIN
  17. STERILE WATER [Concomitant]
     Active Substance: WATER
  18. DOXYCYCLINE. [Concomitant]
     Active Substance: DOXYCYCLINE
  19. WARFARIN [Concomitant]
     Active Substance: WARFARIN
  20. FENTANYL. [Concomitant]
     Active Substance: FENTANYL
  21. EPINEPHRINE. [Concomitant]
     Active Substance: EPINEPHRINE
  22. VICODIN [Concomitant]
     Active Substance: ACETAMINOPHEN\HYDROCODONE BITARTRATE

REACTIONS (1)
  - Hospitalisation [Unknown]
